FAERS Safety Report 25813177 (Version 2)
Quarter: 2025Q4

REPORT INFORMATION
  Report Type: Spontaneous
  Country: US (occurrence: US)
  Receive Date: 20250917
  Receipt Date: 20251009
  Transmission Date: 20260117
  Serious: Yes (Hospitalization)
  Sender: TEVA
  Company Number: US-TEVA-VS-3371535

PATIENT
  Sex: Female

DRUGS (2)
  1. PREDNISONE [Suspect]
     Active Substance: PREDNISONE
     Indication: Drug-induced liver injury
     Dosage: HIGH DOSE
     Route: 048
  2. IMMUNE GLOBULIN NOS [Suspect]
     Active Substance: IMMUNE GLOBULIN NOS
     Indication: Gestational alloimmune liver disease
     Dosage: 1G/KG AT WEEKLY INTERVALS
     Route: 042

REACTIONS (3)
  - Drug-induced liver injury [Recovered/Resolved]
  - Maternal exposure during pregnancy [Unknown]
  - Live birth [Unknown]
